FAERS Safety Report 4541290-4 (Version None)
Quarter: 2004Q4

REPORT INFORMATION
  Report Type: 
  Country: None (occurrence: None)
  Receive Date: 20041228
  Receipt Date: 20041217
  Transmission Date: 20050328
  Serious: Yes (Life-Threatening, Hospitalization)
  Sender: FDA-Public Use
  Company Number: MEDI-0002609

PATIENT
  Age: 62 Year
  Sex: Male
  Weight: 78 kg

DRUGS (9)
  1. ETHYOL [Suspect]
     Indication: CHEMOTHERAPY
     Dosage: SUBCUTANEOUS
     Route: 058
     Dates: start: 20041118, end: 20041129
  2. ETHYOL [Suspect]
     Indication: RADIOTHERAPY
     Dosage: SUBCUTANEOUS
     Route: 058
     Dates: start: 20041118, end: 20041129
  3. RADIATION THERAPY [Concomitant]
  4. CISPLATIN [Concomitant]
  5. ZOCOR [Concomitant]
  6. ACETYLSALICYLIC ACID SRT [Concomitant]
  7. XYLOXYLIN SUSPENSION [Concomitant]
  8. COMPAZINE [Concomitant]
  9. MAGNESIUM SULFATE [Concomitant]

REACTIONS (19)
  - APTYALISM [None]
  - ASPIRATION [None]
  - DRUG HYPERSENSITIVITY [None]
  - DYSPEPSIA [None]
  - DYSPNOEA [None]
  - FEELING ABNORMAL [None]
  - GASTROOESOPHAGEAL REFLUX DISEASE [None]
  - HOARSENESS [None]
  - INCREASED VISCOSITY OF BRONCHIAL SECRETION [None]
  - INSOMNIA [None]
  - LARYNGEAL OEDEMA [None]
  - LARYNGOSPASM [None]
  - MARKEDLY REDUCED DIETARY INTAKE [None]
  - OBSTRUCTIVE AIRWAYS DISORDER [None]
  - OESOPHAGITIS [None]
  - PAIN [None]
  - PRURITUS [None]
  - RASH [None]
  - URTICARIA [None]
